FAERS Safety Report 4603789-1 (Version None)
Quarter: 2005Q1

REPORT INFORMATION
  Report Type: 
  Country: None (occurrence: None)
  Receive Date: 20050310
  Receipt Date: 20050301
  Transmission Date: 20050727
  Serious: Yes (Hospitalization)
  Sender: FDA-Public Use
  Company Number: FR-MERCK-0503USA00172

PATIENT
  Age: 73 Year
  Sex: Male

DRUGS (4)
  1. ZOCOR [Suspect]
     Indication: DYSLIPIDAEMIA
     Route: 048
     Dates: end: 20041129
  2. ZOCOR [Suspect]
     Route: 048
     Dates: start: 20050112, end: 20050115
  3. DETENSIEL [Concomitant]
     Indication: HYPERTENSION
     Route: 048
     Dates: end: 20050101
  4. KARDEGIC [Concomitant]
     Route: 048
     Dates: end: 20041129

REACTIONS (2)
  - GINGIVAL BLEEDING [None]
  - THROMBOCYTOPENIC PURPURA [None]
